FAERS Safety Report 13226385 (Version 1)
Quarter: 2017Q1

REPORT INFORMATION
  Report Type: Spontaneous
  Country: PT (occurrence: PT)
  Receive Date: 20170213
  Receipt Date: 20170213
  Transmission Date: 20170428
  Serious: Yes (Hospitalization)
  Sender: FDA-Public Use
  Company Number: PT-PFIZER INC-2017060247

PATIENT
  Age: 41 Year
  Sex: Male

DRUGS (4)
  1. ADVANTAN [Concomitant]
     Active Substance: CORTICOSTEROID NOS
     Dosage: 1MG/G
     Route: 061
  2. OMEPRAZOL ZENTIVA [Concomitant]
     Dosage: 20 MG, 1X/DAY
     Route: 048
  3. FUCIDINE [Concomitant]
     Active Substance: FUSIDIC ACID
     Dosage: 20 MG/G
     Route: 061
  4. MEDROL [Suspect]
     Active Substance: METHYLPREDNISOLONE
     Indication: RASH
     Dosage: 16 MG, 2X/DAY
     Route: 048
     Dates: start: 20161118

REACTIONS (1)
  - Idiopathic interstitial pneumonia [Not Recovered/Not Resolved]

NARRATIVE: CASE EVENT DATE: 20161122
